FAERS Safety Report 11965753 (Version 1)
Quarter: 2016Q1

REPORT INFORMATION
  Report Type: Spontaneous
  Country: US (occurrence: US)
  Receive Date: 20160127
  Receipt Date: 20160127
  Transmission Date: 20160526
  Serious: Yes (Other)
  Sender: FDA-Public Use
  Company Number: US-SA-2016SA013106

PATIENT
  Age: 77 Year
  Sex: Female

DRUGS (2)
  1. SOLOSTAR [Concomitant]
     Active Substance: DEVICE
     Dates: start: 2014, end: 201508
  2. LANTUS SOLOSTAR [Suspect]
     Active Substance: INSULIN GLARGINE
     Dosage: DOSE:20 UNIT(S)
     Route: 065
     Dates: start: 2014, end: 201508

REACTIONS (2)
  - Blood glucose decreased [Unknown]
  - Colectomy [Unknown]

NARRATIVE: CASE EVENT DATE: 20150820
